FAERS Safety Report 6905968-7 (Version None)
Quarter: 2010Q3

REPORT INFORMATION
  Report Type: 
  Country: None (occurrence: None)
  Receive Date: 20100804
  Receipt Date: 20100723
  Transmission Date: 20110219
  Serious: Yes (Other)
  Sender: FDA-Public Use
  Company Number: US-ELI_LILLY_AND_COMPANY-US201007006947

PATIENT
  Sex: Female

DRUGS (11)
  1. FORTEO [Suspect]
     Indication: OSTEOPOROSIS
     Dosage: 20 UG, DAILY (1/D)
  2. PREDNISONE [Concomitant]
     Dosage: 20 MG, TWO TABLET DAILY
  3. NEXIUM [Concomitant]
     Dosage: 40 MG, 2/D
  4. LEVOTHYROXINE [Concomitant]
     Dosage: 0.5 MG, DAILY (1/D)
  5. DILTIAZEM HYDROCHLORIDE [Concomitant]
     Dosage: 120 MG, DAILY (1/D)
  6. ALPRAZOLAM [Concomitant]
     Dosage: 0.25 MG, EVERY 8 HOURS AS NEEDED
  7. LORAZEPAM [Concomitant]
     Dosage: 0.1 MG, DAILY AS NEEDED
  8. TUSSIONEX [Concomitant]
     Dosage: 1 D/F, 2/D
  9. AZATADINE [Concomitant]
     Dosage: 50 MG, 2/D
  10. LIPITOR [Concomitant]
     Dosage: 80 MG, DAILY (1/D)
  11. UROXATRAL [Concomitant]
     Dosage: 10 MG, DAILY (1/D)

REACTIONS (3)
  - DYSPNOEA [None]
  - LUNG DISORDER [None]
  - MALAISE [None]
